FAERS Safety Report 7099677-4 (Version None)
Quarter: 2010Q4

REPORT INFORMATION
  Report Type: 
  Country: None (occurrence: None)
  Receive Date: 20101112
  Receipt Date: 20101108
  Transmission Date: 20110411
  Serious: Yes (Other)
  Sender: FDA-Public Use
  Company Number: VE-PFIZER INC-2010143932

PATIENT
  Age: 70 Year
  Sex: Female

DRUGS (6)
  1. LYRICA [Suspect]
     Indication: NEUROPATHY PERIPHERAL
     Dosage: 75 MG, 1X/DAY
     Route: 048
     Dates: start: 20100927, end: 20101011
  2. LYRICA [Suspect]
     Dosage: 150 MG, 1X/DAY
     Route: 048
     Dates: start: 20101011, end: 20101018
  3. LYRICA [Suspect]
     Dosage: 300 MG, 1X/DAY
     Route: 048
     Dates: start: 20101018, end: 20101025
  4. GLUCOSAMINE [Concomitant]
     Indication: OSTEOPOROSIS
     Dosage: UNK
     Route: 048
  5. CALCIUM CITRATE/MAGNESIUM [Concomitant]
     Indication: OSTEOPOROSIS
     Dosage: 1900 MG, 1X/DAY
     Route: 048
  6. ALENDRONATE SODIUM [Concomitant]
     Indication: OSTEOPOROSIS
     Dosage: UNK
     Route: 048

REACTIONS (5)
  - ABDOMINAL DISTENSION [None]
  - AGGRESSION [None]
  - DYSPNOEA [None]
  - FATIGUE [None]
  - WEIGHT INCREASED [None]
